FAERS Safety Report 14173757 (Version 1)
Quarter: 2017Q4

REPORT INFORMATION
  Report Type: Spontaneous
  Country: FR (occurrence: FR)
  Receive Date: 20171109
  Receipt Date: 20171109
  Transmission Date: 20180321
  Serious: Yes (Other)
  Sender: FDA-Public Use
  Company Number: FR-MERCK KGAA-2033675

PATIENT
  Age: 69 Year
  Sex: Female

DRUGS (1)
  1. NOVOTHYROX [Suspect]
     Active Substance: LEVOTHYROXINE SODIUM
     Indication: HYPOTHYROIDISM
     Dates: start: 2017

REACTIONS (11)
  - Fatigue [None]
  - Amnesia [None]
  - Anxiety [None]
  - Hepatitis [None]
  - Dyspnoea [None]
  - Constipation [None]
  - Muscle spasms [None]
  - Depression [None]
  - Tremor [None]
  - Dyspepsia [None]
  - Hyperhidrosis [None]

NARRATIVE: CASE EVENT DATE: 2017
